FAERS Safety Report 8885063 (Version 3)
Quarter: 2013Q2

REPORT INFORMATION
  Report Type: Spontaneous
  Country: DK (occurrence: DE)
  Receive Date: 20121102
  Receipt Date: 20130611
  Transmission Date: 20140414
  Serious: Yes (Life-Threatening, Hospitalization, Disabling)
  Sender: FDA-Public Use
  Company Number: DE-FRI-1000040010

PATIENT
  Age: 29 Year
  Sex: Male
  Weight: 73 kg

DRUGS (4)
  1. CITALOPRAM [Suspect]
     Indication: DEPRESSION
     Dosage: 40 MG
     Route: 048
  2. HUSTENSTILLER-RATIOPHARM [Interacting]
     Dosage: UP TO 40 CAPSULES WITHIN 3-4 DAYS
     Route: 048
  3. SEROQUEL [Concomitant]
     Dosage: AS NEEDED
  4. TAXILAN [Concomitant]
     Indication: RESTLESSNESS
     Dosage: 75 MG
     Route: 048

REACTIONS (8)
  - Fall [Recovering/Resolving]
  - Pelvic fracture [Recovering/Resolving]
  - Acute psychosis [Recovering/Resolving]
  - Delusion of grandeur [Recovering/Resolving]
  - Hallucination, visual [Recovering/Resolving]
  - Hepatic enzyme increased [Recovering/Resolving]
  - Intentional overdose [Recovering/Resolving]
  - Drug interaction [Recovering/Resolving]
